FAERS Safety Report 9371716 (Version 1)
Quarter: 2013Q2

REPORT INFORMATION
  Report Type: Spontaneous
  Country: US (occurrence: US)
  Receive Date: 20130627
  Receipt Date: 20130627
  Transmission Date: 20140414
  Serious: No
  Sender: FDA-Public Use
  Company Number: US-PFIZER INC-2013191184

PATIENT
  Age: 56 Year
  Sex: Male
  Weight: 63.9 kg

DRUGS (7)
  1. LYRICA [Suspect]
     Indication: NEUROPATHY PERIPHERAL
     Dosage: 75 MG, 3X/DAY
  2. LYRICA [Suspect]
     Indication: PAIN IN EXTREMITY
  3. LYRICA [Suspect]
     Indication: NERVE COMPRESSION
  4. OXYCODONE [Concomitant]
     Indication: PAIN IN EXTREMITY
     Dosage: 50 MG, AS NEEDED
  5. OXYCODONE [Concomitant]
     Indication: NERVE COMPRESSION
  6. MORPHINE SULFATE [Concomitant]
     Indication: PAIN IN EXTREMITY
     Dosage: 120 MG, 2X/DAY
  7. MORPHINE SULFATE [Concomitant]
     Indication: NERVE COMPRESSION

REACTIONS (1)
  - Local swelling [Not Recovered/Not Resolved]
